FAERS Safety Report 19594954 (Version 1)
Quarter: 2021Q3

REPORT INFORMATION
  Report Type: Spontaneous
  Country: FI (occurrence: FI)
  Receive Date: 20210722
  Receipt Date: 20210722
  Transmission Date: 20211014
  Serious: Yes (Hospitalization)
  Sender: FDA-Public Use
  Company Number: FI-ORGANON-O2107FIN001625

PATIENT
  Age: 12 Year
  Sex: Female

DRUGS (2)
  1. AERIUS (DESLORATADINE) [Suspect]
     Active Substance: DESLORATADINE
     Indication: URTICARIA THERMAL
     Dosage: 5 MILLIGRAM, DAILY (QD)
     Route: 048
     Dates: start: 20201001, end: 20210113
  2. BUDESONIDE. [Concomitant]
     Active Substance: BUDESONIDE
     Indication: ASTHMA
     Dosage: UNK
     Route: 055

REACTIONS (3)
  - Idiosyncratic drug reaction [Recovered/Resolved]
  - Biopsy liver [Recovered/Resolved]
  - Cholestatic liver injury [Recovered/Resolved]

NARRATIVE: CASE EVENT DATE: 20201223
